FAERS Safety Report 5150234-6 (Version None)
Quarter: 2006Q4

REPORT INFORMATION
  Report Type: 
  Country: None (occurrence: None)
  Receive Date: 20061114
  Receipt Date: 20060724
  Transmission Date: 20070319
  Serious: Yes (Hospitalization, Other)
  Sender: FDA-Public Use
  Company Number: IT-ABBOTT-06P-083-0338782-00

PATIENT
  Sex: Female
  Weight: 66 kg

DRUGS (9)
  1. HUMIRA [Suspect]
     Indication: RHEUMATOID ARTHRITIS
     Route: 058
     Dates: start: 20050318, end: 20060626
  2. HUMIRA [Suspect]
     Dates: start: 20061025
  3. RABEPRAZOLE SODIUM [Concomitant]
     Indication: PROPHYLAXIS AGAINST GASTROINTESTINAL ULCER
  4. ACETYLSALICYLIC ACID SRT [Concomitant]
     Indication: ISCHAEMIC CARDIOMYOPATHY
  5. ENALAPRIL MALEATE [Concomitant]
     Indication: HYPERTENSION
  6. RAMIPRIL [Concomitant]
     Indication: HYPERTENSION
  7. LEKOVIT CA [Concomitant]
     Indication: OSTEOPOROSIS
     Dosage: 1000+800 UI
  8. COMMERCIAL HUMIRA [Concomitant]
     Indication: RHEUMATOID ARTHRITIS
     Route: 058
     Dates: start: 20040910
  9. ENOXAPARIN SODIUM [Concomitant]
     Indication: PROPHYLAXIS
     Dates: start: 20060701

REACTIONS (2)
  - ATRIAL FIBRILLATION [None]
  - PNEUMONIA [None]
